FAERS Safety Report 6831186-7 (Version None)
Quarter: 2010Q3

REPORT INFORMATION
  Report Type: 
  Country: None (occurrence: None)
  Receive Date: 20100712
  Receipt Date: 20100707
  Transmission Date: 20110219
  Serious: Yes (Death)
  Sender: FDA-Public Use
  Company Number: GB-JNJFOC-20100701597

PATIENT
  Age: 69 Year
  Sex: Male
  Weight: 138 kg

DRUGS (6)
  1. HALOPERIDOL [Suspect]
     Indication: AGITATION
     Route: 048
  2. ARIPIPRAZOLE [Suspect]
     Indication: PSYCHOTIC BEHAVIOUR
     Route: 065
  3. ARIPIPRAZOLE [Suspect]
     Indication: DEPRESSION
     Route: 065
  4. ARIPIPRAZOLE [Suspect]
     Indication: BIPOLAR DISORDER
     Route: 065
  5. LORAZEPAM [Suspect]
     Indication: AGITATION
     Route: 048
  6. DIAZEPAM [Concomitant]
     Indication: PRODUCT USED FOR UNKNOWN INDICATION
     Route: 065

REACTIONS (1)
  - DEATH [None]
